FAERS Safety Report 6003956-9 (Version None)
Quarter: 2008Q4

REPORT INFORMATION
  Report Type: 
  Country: None (occurrence: None)
  Receive Date: 20081212
  Receipt Date: 20081128
  Transmission Date: 20090506
  Serious: Yes (Life-Threatening, Other)
  Sender: FDA-Public Use
  Company Number: 2008S1021257

PATIENT
  Sex: Male

DRUGS (2)
  1. DEXTROPROPOXYPHENE PARACETAMOL MERCK (APOREX) [Suspect]
     Indication: ARTHRALGIA
     Dates: start: 20081126, end: 20081126
  2. DIANTALVIC [Concomitant]

REACTIONS (1)
  - ANGIOEDEMA [None]
